FAERS Safety Report 8510130-0 (Version None)
Quarter: 2012Q3

REPORT INFORMATION
  Report Type: 
  Country: None (occurrence: None)
  Receive Date: 20120713
  Receipt Date: 20120701
  Transmission Date: 20120928
  Serious: Yes (Other)
  Sender: FDA-Public Use
  Company Number: LB-ROCHE-647350

PATIENT

DRUGS (1)
  1. AVASTIN [Suspect]
     Indication: OCULAR VASCULAR DISORDER
     Route: 050

REACTIONS (5)
  - RETINAL HAEMORRHAGE [None]
  - OCULAR HYPERTENSION [None]
  - RETINAL PIGMENT EPITHELIAL TEAR [None]
  - MACULAR ISCHAEMIA [None]
  - SUBRETINAL FIBROSIS [None]
